FAERS Safety Report 9845462 (Version 3)
Quarter: 2014Q2

REPORT INFORMATION
  Report Type: Report from Study
  Country: US (occurrence: US)
  Receive Date: 20140127
  Receipt Date: 20140603
  Transmission Date: 20141212
  Serious: Yes (Other)
  Sender: FDA-Public Use
  Company Number: US-PURDUE-USA-2014-0110529

PATIENT
  Age: 52 Year
  Sex: Female
  Weight: 90.25 kg

DRUGS (3)
  1. OXY CR TAB [Suspect]
     Indication: NECK PAIN
     Dosage: 40 MG, Q12H
     Route: 048
     Dates: start: 201305
  2. OXY CR TAB [Suspect]
     Dosage: 40 MG, BID
     Route: 048
     Dates: start: 20130924
  3. OXY CR TAB [Suspect]
     Dosage: 40 MG, BID
     Route: 048
     Dates: start: 20140226

REACTIONS (3)
  - Tendon disorder [Unknown]
  - Foot deformity [Unknown]
  - Pyrexia [Unknown]
